FAERS Safety Report 12110013 (Version 1)
Quarter: 2016Q1

REPORT INFORMATION
  Report Type: Spontaneous
  Country: US (occurrence: None)
  Receive Date: 20160223
  Receipt Date: 20160223
  Transmission Date: 20160526
  Serious: Yes (Other)
  Sender: FDA-Public Use
  Company Number: None

PATIENT
  Age: 74 Year
  Sex: Female
  Weight: 0 kg

DRUGS (3)
  1. FORTEO [Suspect]
     Active Substance: TERIPARATIDE
     Indication: PRODUCT USED FOR UNKNOWN INDICATION
     Dosage: SUBCUTANEOUS 057 20MCG INJECTABLE DAILY
     Route: 058
     Dates: start: 20160127, end: 20160211
  2. ASPIRIN. [Concomitant]
     Active Substance: ASPIRIN
  3. CODEINE [Concomitant]
     Active Substance: CODEINE

REACTIONS (3)
  - Fatigue [None]
  - Arthralgia [None]
  - Bradyphrenia [None]

NARRATIVE: CASE EVENT DATE: 20160211
